FAERS Safety Report 8260299-0 (Version None)
Quarter: 2012Q2

REPORT INFORMATION
  Report Type: 
  Country: None (occurrence: None)
  Receive Date: 20120404
  Receipt Date: 20120322
  Transmission Date: 20120825
  Serious: Yes (Death, Hospitalization)
  Sender: FDA-Public Use
  Company Number: SE-ROCHE-722577

PATIENT
  Age: 60 Year
  Sex: Female

DRUGS (3)
  1. METHOTREXATE [Concomitant]
     Dosage: REPORTED AS: METHOTREXATE ORION TABLET 2.5 MG
  2. ACTEMRA [Suspect]
     Indication: RHEUMATOID ARTHRITIS
     Route: 042
     Dates: start: 20100118, end: 20100713
  3. PREDNISOLONE [Concomitant]
     Dosage: REPORTED AS: PREDNISOLON COMP EYE DROPS, FORM: EYE DROPS
     Route: 047

REACTIONS (4)
  - SEPSIS [None]
  - LEUKOPENIA [None]
  - CIRCULATORY COLLAPSE [None]
  - THROMBOCYTOPENIA [None]
